FAERS Safety Report 18433253 (Version 2)
Quarter: 2020Q4

REPORT INFORMATION
  Report Type: Report from Study
  Country: SA (occurrence: SA)
  Receive Date: 20201028
  Receipt Date: 20201104
  Transmission Date: 20210114
  Serious: Yes (Hospitalization)
  Sender: FDA-Public Use
  Company Number: SA-CELLTRION INC.-2019SA024767

PATIENT

DRUGS (23)
  1. PENTASA [Concomitant]
     Active Substance: MESALAMINE
     Indication: PRODUCT USED FOR UNKNOWN INDICATION
     Dosage: UNK
     Route: 065
  2. REMSIMA [Suspect]
     Active Substance: INFLIXIMAB
     Indication: CROHN^S DISEASE
     Dosage: 3.75 MG (210 MG,1 IN 8 WK)
     Route: 042
     Dates: start: 20190225
  3. PREDNISOLONE. [Concomitant]
     Active Substance: PREDNISOLONE
     Indication: CROHN^S DISEASE
     Dosage: 40 MG, 1 IN 1 D
     Route: 048
     Dates: start: 20190602
  4. IMIPENEM/CIALASTATIN [Concomitant]
     Indication: CROHN^S DISEASE
     Dosage: 2000 MG (500MG, 4 IN 1 D)
     Route: 042
     Dates: start: 20190612, end: 20190616
  5. METOCLOPRAMIDE [METOCLOPRAMIDE HYDROCHLORIDE] [Concomitant]
     Active Substance: METOCLOPRAMIDE HYDROCHLORIDE
     Indication: HICCUPS
     Dosage: 10 MG, 1 IN 1 D
     Route: 042
     Dates: start: 20190614, end: 20190620
  6. CALCIUM CARBONATE W/VITAMIN D [CALCIUM CARBONATE;COLECALCIFEROL] [Concomitant]
     Active Substance: CALCIUM CARBONATE\CHOLECALCIFEROL
     Indication: MALNUTRITION
     Dosage: 1500/800 (1 IN 1 D)
     Route: 048
     Dates: start: 20190630, end: 20190729
  7. FOLIC ACID. [Concomitant]
     Active Substance: FOLIC ACID
     Indication: IRON DEFICIENCY ANAEMIA
     Dosage: 5 MG,1 IN 1 D
     Route: 048
     Dates: start: 20190122
  8. CIPROFLOXACIN. [Concomitant]
     Active Substance: CIPROFLOXACIN
     Indication: CROHN^S DISEASE
     Dosage: 800 MG (400 MG,2 IN 1 D)
     Route: 042
     Dates: start: 20190605, end: 20190610
  9. METRONIDAZOLE. [Concomitant]
     Active Substance: METRONIDAZOLE
     Indication: CROHN^S DISEASE
     Dosage: 1500 MG (500MG, 3 IN 1 D)
     Route: 042
     Dates: start: 20190605, end: 20190608
  10. METOCLOPRAMIDE [METOCLOPRAMIDE HYDROCHLORIDE] [Concomitant]
     Active Substance: METOCLOPRAMIDE HYDROCHLORIDE
     Indication: NAUSEA
  11. REMSIMA [Suspect]
     Active Substance: INFLIXIMAB
     Dosage: 5 MG/KG (200 MG)
     Route: 042
     Dates: start: 20190423
  12. ENOXAPARINE [Concomitant]
     Active Substance: ENOXAPARIN
     Indication: DEEP VEIN THROMBOSIS
     Dosage: 40MG, 1 IN 1 D
     Route: 058
     Dates: start: 20190626, end: 20190725
  13. REMSIMA [Suspect]
     Active Substance: INFLIXIMAB
     Dosage: 6.4286 MG (360 MG,1 IN 8 WK)
     Route: 042
     Dates: start: 20190728
  14. IRON DEXTRAN INJECTION [Concomitant]
     Indication: IRON DEFICIENCY ANAEMIA
     Dosage: 1000 MG, 1 IN 1 D
     Route: 042
     Dates: start: 20181101
  15. IMURAN [Concomitant]
     Active Substance: AZATHIOPRINE
     Indication: PRODUCT USED FOR UNKNOWN INDICATION
     Dosage: UNKNOWN
     Route: 065
  16. REMSIMA [Suspect]
     Active Substance: INFLIXIMAB
     Dosage: 6.0714 MG (340 MG,1 IN 8 WK)
     Route: 042
     Dates: start: 20191009
  17. REMSIMA [Suspect]
     Active Substance: INFLIXIMAB
     Dosage: 7.5 MG (420 MG,1 IN 8 WK)
     Route: 042
     Dates: start: 20191203
  18. TIGECYCLINE. [Concomitant]
     Active Substance: TIGECYCLINE
     Indication: CROHN^S DISEASE
     Dosage: 100 MG (50 MG,2 IN 1 D)
     Route: 042
     Dates: start: 20190914, end: 20191003
  19. REMSIMA [Suspect]
     Active Substance: INFLIXIMAB
     Dosage: 7.5 MG (420 MG,1 IN 8 WK)
     Route: 042
     Dates: start: 20200128
  20. BLOOD TRANSFUSION [Concomitant]
     Active Substance: HUMAN RED BLOOD CELL
     Indication: IRON DEFICIENCY ANAEMIA
     Dosage: 2 IU, 1 IN 1 D
     Route: 042
     Dates: start: 20190122, end: 20190122
  21. TPN [AMINO ACIDS NOS;CARBOHYDRATES NOS;MINERALS NOS;VITAMINS NOS] [Concomitant]
     Active Substance: AMINO ACIDS\CARBOHYDRATES\MINERALS\VITAMINS
     Indication: CROHN^S DISEASE
     Dosage: UNKNOWN (1 IN 1 D)
     Route: 042
     Dates: start: 20190603, end: 20190708
  22. METOCLOPRAMIDE [METOCLOPRAMIDE HYDROCHLORIDE] [Concomitant]
     Active Substance: METOCLOPRAMIDE HYDROCHLORIDE
     Indication: VOMITING
  23. HEPARIN [Concomitant]
     Active Substance: HEPARIN SODIUM
     Indication: THROMBOSIS PROPHYLAXIS
     Dosage: 5000 IU (5000 IU,1 IN 24 HR)
     Route: 058
     Dates: start: 20190820, end: 20191017

REACTIONS (3)
  - Abdominal abscess [Recovered/Resolved]
  - Overdose [Unknown]
  - Underdose [Unknown]

NARRATIVE: CASE EVENT DATE: 20190529
